FAERS Safety Report 8055029-1 (Version None)
Quarter: 2012Q1

REPORT INFORMATION
  Report Type: 
  Country: None (occurrence: None)
  Receive Date: 20120119
  Receipt Date: 20120116
  Transmission Date: 20120608
  Serious: Yes (Life-Threatening, Hospitalization)
  Sender: FDA-Public Use
  Company Number: FR-PFIZER INC-2012011515

PATIENT
  Age: 69 Year
  Sex: Male

DRUGS (6)
  1. AGOMELATINE [Concomitant]
     Dosage: 25 MG, UNK
  2. SUTENT [Suspect]
     Indication: PANCREATIC CARCINOMA
     Dosage: 37.5 MG, 1X/DAY
     Route: 048
     Dates: start: 20111125, end: 20111216
  3. FOLIC ACID [Concomitant]
     Dosage: 5 MG, UNK
  4. AMLODIPINE BESYLATE [Concomitant]
     Dosage: 10 MG, UNK
  5. LASIX [Concomitant]
     Dosage: 40 MG, UNK
  6. PANTOPRAZOLE [Concomitant]
     Dosage: 20 MG, UNK

REACTIONS (1)
  - MICROANGIOPATHIC HAEMOLYTIC ANAEMIA [None]
